FAERS Safety Report 25968721 (Version 1)
Quarter: 2025Q4

REPORT INFORMATION
  Report Type: Spontaneous
  Country: EU (occurrence: EU)
  Receive Date: 20251028
  Receipt Date: 20251028
  Transmission Date: 20260118
  Serious: Yes (Hospitalization)
  Sender: PFIZER
  Company Number: EU-PFIZER INC-PV202500125073

PATIENT
  Sex: Male

DRUGS (1)
  1. CIBINQO [Suspect]
     Active Substance: ABROCITINIB
     Indication: Dermatitis atopic
     Dosage: UNK
     Route: 048
     Dates: start: 20241003, end: 20250910

REACTIONS (5)
  - Arthritis reactive [Recovering/Resolving]
  - Staphylococcal infection [Recovered/Resolved]
  - Pyrexia [Recovering/Resolving]
  - Chills [Recovering/Resolving]
  - Impetigo [Recovering/Resolving]

NARRATIVE: CASE EVENT DATE: 20250819
